FAERS Safety Report 6690207-5 (Version None)
Quarter: 2010Q2

REPORT INFORMATION
  Report Type: 
  Country: None (occurrence: None)
  Receive Date: 20100421
  Receipt Date: 20100420
  Transmission Date: 20101027
  Serious: Yes (Hospitalization)
  Sender: FDA-Public Use
  Company Number: US-ROXANE LABORATORIES, INC.-2010-RO-00443RO

PATIENT
  Age: 81 Year
  Sex: Male

DRUGS (2)
  1. CALCIUM CARBONATE [Suspect]
     Indication: OSTEOPOROSIS PROPHYLAXIS
  2. SALINE [Concomitant]
     Indication: MILK-ALKALI SYNDROME

REACTIONS (3)
  - BLOOD CREATININE INCREASED [None]
  - BLOOD PRESSURE INCREASED [None]
  - MILK-ALKALI SYNDROME [None]
